FAERS Safety Report 6446198-5 (Version None)
Quarter: 2009Q4

REPORT INFORMATION
  Report Type: 
  Country: None (occurrence: None)
  Receive Date: 20091119
  Receipt Date: 20091111
  Transmission Date: 20100525
  Serious: Yes (Other)
  Sender: FDA-Public Use
  Company Number: AU-JNJFOC-20090604710

PATIENT
  Sex: Male

DRUGS (4)
  1. RISPERDAL [Suspect]
     Indication: SCHIZOPHRENIA
     Route: 048
  2. BENZATROPINE [Suspect]
     Indication: EXTRAPYRAMIDAL DISORDER
     Route: 065
  3. CARBAMAZEPINE [Suspect]
     Indication: EPILEPSY
     Route: 065
  4. VALPROATE SODIUM [Suspect]
     Indication: EPILEPSY
     Route: 065

REACTIONS (2)
  - HOMICIDE [None]
  - TREATMENT NONCOMPLIANCE [None]
